FAERS Safety Report 16366133 (Version 1)
Quarter: 2019Q2

REPORT INFORMATION
  Report Type: Spontaneous
  Country: US (occurrence: US)
  Receive Date: 20190529
  Receipt Date: 20190529
  Transmission Date: 20190711
  Serious: No
  Sender: FDA-Public Use
  Company Number: US-ASTRAZENECA-2019SE78550

PATIENT
  Sex: Female

DRUGS (1)
  1. DALIRESP [Suspect]
     Active Substance: ROFLUMILAST
     Indication: CHRONIC OBSTRUCTIVE PULMONARY DISEASE
     Dosage: 500.0UG UNKNOWN
     Route: 048

REACTIONS (4)
  - Nausea [Recovered/Resolved]
  - Dizziness [Recovered/Resolved]
  - Confusional state [Recovered/Resolved]
  - Diarrhoea [Recovered/Resolved]
